FAERS Safety Report 5090074-X (Version None)
Quarter: 2006Q3

REPORT INFORMATION
  Report Type: 
  Country: None (occurrence: None)
  Receive Date: 20060828
  Receipt Date: 20060810
  Transmission Date: 20061208
  Serious: Yes (Death, Hospitalization)
  Sender: FDA-Public Use
  Company Number: 2006AP03760

PATIENT
  Age: 24592 Day
  Sex: Female

DRUGS (6)
  1. IRESSA [Suspect]
     Route: 048
     Dates: start: 20060728
  2. CODEINE [Concomitant]
     Indication: COUGH
     Dates: start: 20060731
  3. MEGACE [Concomitant]
     Indication: ANOREXIA
     Dates: start: 20060731
  4. MUTERAN [Concomitant]
     Indication: PRODUCTIVE COUGH
     Dates: start: 20060731
  5. MACPERAN [Concomitant]
     Indication: NAUSEA
     Dates: start: 20060731
  6. ULTRACET [Concomitant]
     Indication: PAIN
     Dates: start: 20060731

REACTIONS (2)
  - PNEUMONIA [None]
  - TREATMENT NONCOMPLIANCE [None]
